FAERS Safety Report 20269176 (Version 1)
Quarter: 2022Q1

REPORT INFORMATION
  Report Type: Spontaneous
  Country: FR (occurrence: FR)
  Receive Date: 20220101
  Receipt Date: 20220101
  Transmission Date: 20220424
  Serious: Yes (Hospitalization, Other)
  Sender: FDA-Public Use
  Company Number: FR-UCBSA-2021043509

PATIENT
  Age: 24 Year
  Sex: Female
  Weight: 92 kg

DRUGS (5)
  1. TRAMADOL [Suspect]
     Active Substance: TRAMADOL
     Indication: Arthralgia
     Dosage: UNK
     Route: 065
     Dates: start: 20210626, end: 202106
  2. CIMZIA [Suspect]
     Active Substance: CERTOLIZUMAB PEGOL
     Indication: Product used for unknown indication
     Dosage: 400 MILLIGRAM, EVERY TWO WEEKS
     Route: 058
     Dates: start: 20210614, end: 20210626
  3. CETIRIZINE [Concomitant]
     Active Substance: CETIRIZINE HYDROCHLORIDE
     Indication: Pruritus
     Dosage: 1 DOSAGE FORM, ONCE A DAY (QD)
     Route: 065
     Dates: start: 20210628
  4. ACUPAN [Concomitant]
     Active Substance: NEFOPAM HYDROCHLORIDE
     Indication: Pain
     Dosage: 1 AMPOULE TO DRINK, FOUR TIMES/DAY
     Route: 065
     Dates: start: 20210628
  5. DOLIPRANE [Concomitant]
     Active Substance: ACETAMINOPHEN
     Indication: Pain
     Dosage: 4 GRAM, ONCE A DAY (1 GRAM, 4X/DAY (QID))
     Route: 065
     Dates: start: 20210628

REACTIONS (9)
  - Thrombocytopenia [Recovered/Resolved]
  - Arthralgia [Recovered/Resolved]
  - Injection site plaque [Unknown]
  - Serum sickness [Unknown]
  - Influenza like illness [Unknown]
  - Urticaria [Recovered/Resolved]
  - Myalgia [Unknown]
  - General physical condition abnormal [Unknown]
  - Hypoalbuminaemia [Unknown]

NARRATIVE: CASE EVENT DATE: 20210623
